FAERS Safety Report 4377000-3 (Version None)
Quarter: 2004Q2

REPORT INFORMATION
  Report Type: 
  Country: None (occurrence: None)
  Receive Date: 20040608
  Receipt Date: 20040524
  Transmission Date: 20050107
  Serious: Yes (Hospitalization)
  Sender: FDA-Public Use
  Company Number: JP-JNJFOC-20040506905

PATIENT
  Age: 62 Year
  Sex: Female
  Weight: 50.7 kg

DRUGS (6)
  1. REMICADE (INFLIXIMAB, RECOMVINANT) LYOPHILIZED POWDER [Suspect]
     Indication: RHEUMATOID ARTHRITIS
     Dosage: 3 MG/KG, 1 IN1 AS NECESSARY, INTRAVENOUS DRIP
     Route: 041
     Dates: start: 20040301, end: 20040301
  2. REMICADE (INFLIXIMAB, RECOMVINANT) LYOPHILIZED POWDER [Suspect]
     Indication: RHEUMATOID ARTHRITIS
     Dosage: 3 MG/KG, 1 IN1 AS NECESSARY, INTRAVENOUS DRIP
     Route: 041
     Dates: start: 20040315, end: 20040315
  3. REMICADE (INFLIXIMAB, RECOMVINANT) LYOPHILIZED POWDER [Suspect]
     Indication: RHEUMATOID ARTHRITIS
     Dosage: 3 MG/KG, 1 IN1 AS NECESSARY, INTRAVENOUS DRIP
     Route: 041
     Dates: start: 20040414, end: 20040414
  4. PREDNISOLONE [Suspect]
     Indication: DRUG USE FOR UNKNOWN INDICATION
  5. IMURAN [Suspect]
     Indication: DRUG USE FOR UNKNOWN INDICATION
  6. METHOTREXATE (UNKNWON) (METHOTREXATE) [Concomitant]

REACTIONS (3)
  - DRUG INTERACTION [None]
  - INTERSTITIAL LUNG DISEASE [None]
  - PNEUMOCYSTIS CARINII PNEUMONIA [None]
